FAERS Safety Report 15834948 (Version 1)
Quarter: 2019Q1

REPORT INFORMATION
  Report Type: Other
  Country: DE (occurrence: DE)
  Receive Date: 20190116
  Receipt Date: 20190116
  Transmission Date: 20190417
  Serious: Yes (Other)
  Sender: FDA-Public Use
  Company Number: DE-TEIKOKU PHARMA USA-TPU2019-00028

PATIENT
  Age: 53 Year
  Sex: Female

DRUGS (7)
  1. TAPENTADOL [Suspect]
     Active Substance: TAPENTADOL
     Indication: NEURALGIA
     Route: 065
  2. LIDOCAINE PATCH 5% [Suspect]
     Active Substance: LIDOCAINE
     Indication: RADICULOPATHY
     Route: 061
  3. NALOXONE [Suspect]
     Active Substance: NALOXONE
     Indication: RADICULOPATHY
  4. DULOXETINE. [Suspect]
     Active Substance: DULOXETINE
     Indication: NEURALGIA
  5. DULOXETINE. [Suspect]
     Active Substance: DULOXETINE
     Indication: RADICULOPATHY
  6. NALOXONE [Suspect]
     Active Substance: NALOXONE
     Indication: NEURALGIA
  7. TILIDINE [Suspect]
     Active Substance: TILIDINE
     Indication: NEURALGIA

REACTIONS (2)
  - Drug ineffective for unapproved indication [Unknown]
  - Cognitive disorder [Unknown]
